FAERS Safety Report 10971837 (Version 1)
Quarter: 2015Q1

REPORT INFORMATION
  Report Type: Report from Study
  Country: FR (occurrence: FR)
  Receive Date: 20150331
  Receipt Date: 20150331
  Transmission Date: 20150721
  Serious: Yes (Hospitalization, Other)
  Sender: FDA-Public Use
  Company Number: FR-BRISTOL-MYERS SQUIBB COMPANY-19973585

PATIENT
  Age: 73 Year
  Sex: Female

DRUGS (12)
  1. NIVOLUMAB [Suspect]
     Active Substance: NIVOLUMAB
     Indication: METASTATIC MALIGNANT MELANOMA
     Dosage: 1DF= 1VS3MG/KG 3MG/KG VS 1MG/KG  3MG/KG, EVERY 2WKS
     Route: 042
     Dates: start: 20131206, end: 20131226
  2. CORTANCYL [Concomitant]
     Active Substance: PREDNISONE
  3. SOLU-MEDROL [Concomitant]
     Active Substance: METHYLPREDNISOLONE SODIUM SUCCINATE
  4. SMECTA [Concomitant]
     Active Substance: MONTMORILLONITE
  5. CLAFORAN [Concomitant]
     Active Substance: CEFOTAXIME SODIUM
  6. IPILIMUMAB [Suspect]
     Active Substance: IPILIMUMAB
     Indication: METASTATIC MALIGNANT MELANOMA
     Route: 042
  7. INEXIUM [Concomitant]
     Active Substance: ESOMEPRAZOLE
  8. LOVENOX [Concomitant]
     Active Substance: ENOXAPARIN SODIUM
  9. DIFFU-K [Concomitant]
     Active Substance: POTASSIUM CHLORIDE
  10. POTASSIUM [Concomitant]
     Active Substance: POTASSIUM
  11. TIORFAN [Concomitant]
     Active Substance: RACECADOTRIL
  12. FLAGYL [Concomitant]
     Active Substance: METRONIDAZOLE\METRONIDAZOLE HYDROCHLORIDE

REACTIONS (1)
  - Colitis [Recovered/Resolved]

NARRATIVE: CASE EVENT DATE: 20131230
